FAERS Safety Report 6096512-8 (Version None)
Quarter: 2009Q1

REPORT INFORMATION
  Report Type: 
  Country: None (occurrence: None)
  Receive Date: 20090225
  Receipt Date: 20090216
  Transmission Date: 20090719
  Serious: Yes (Hospitalization, Other)
  Sender: FDA-Public Use
  Company Number: 2007SP018093

PATIENT
  Age: 59 Year
  Sex: Female
  Weight: 56 kg

DRUGS (11)
  1. PEG-INTRON [Suspect]
     Indication: HEPATITIS C
     Dosage: 50 MCG;QW;SC; 50 MCG;QW;SC; 30 MCG;QW;SC
     Route: 058
     Dates: start: 20061004, end: 20061124
  2. PEG-INTRON [Suspect]
     Indication: HEPATITIS C
     Dosage: 50 MCG;QW;SC; 50 MCG;QW;SC; 30 MCG;QW;SC
     Route: 058
     Dates: start: 20070111, end: 20070117
  3. PEG-INTRON [Suspect]
     Indication: HEPATITIS C
     Dosage: 50 MCG;QW;SC; 50 MCG;QW;SC; 30 MCG;QW;SC
     Route: 058
     Dates: start: 20070208, end: 20070216
  4. REBETOL [Suspect]
     Indication: HEPATITIS C
     Dosage: 400 MG;QD;PO; 200 MG;QD;PO; 200 MG;QD;PO
     Route: 048
     Dates: start: 20061004, end: 20061129
  5. REBETOL [Suspect]
     Indication: HEPATITIS C
     Dosage: 400 MG;QD;PO; 200 MG;QD;PO; 200 MG;QD;PO
     Route: 048
     Dates: start: 20070111, end: 20070123
  6. REBETOL [Suspect]
     Indication: HEPATITIS C
     Dosage: 400 MG;QD;PO; 200 MG;QD;PO; 200 MG;QD;PO
     Route: 048
     Dates: start: 20070208, end: 20070219
  7. KARY UNI [Concomitant]
  8. LOXONIN [Concomitant]
  9. HEAVY MAGNESIUM OXIDE [Concomitant]
  10. ALOSENN [Concomitant]
  11. MUCOSTA [Concomitant]

REACTIONS (15)
  - ANAEMIA [None]
  - ARTHRITIS BACTERIAL [None]
  - ASCITES [None]
  - BLOOD ALBUMIN DECREASED [None]
  - DISSEMINATED INTRAVASCULAR COAGULATION [None]
  - HAEMORRHAGIC DIATHESIS [None]
  - HEPATIC FAILURE [None]
  - NEUTROPHIL COUNT DECREASED [None]
  - NEUTROPHIL COUNT INCREASED [None]
  - PERITONITIS [None]
  - PROCEDURAL PAIN [None]
  - PROTEIN TOTAL DECREASED [None]
  - PYOMETRA [None]
  - SALPINGITIS [None]
  - WHITE BLOOD CELL COUNT INCREASED [None]
